FAERS Safety Report 4852601-4 (Version None)
Quarter: 2005Q4

REPORT INFORMATION
  Report Type: 
  Country: None (occurrence: None)
  Receive Date: 20051125
  Receipt Date: 20050815
  Transmission Date: 20060501
  Serious: Yes (Other)
  Sender: FDA-Public Use
  Company Number: 2005106603

PATIENT
  Age: 58 Year
  Sex: Female
  Weight: 127.0072 kg

DRUGS (19)
  1. TIKOSYN [Suspect]
     Indication: ATRIAL FIBRILLATION
     Dosage: 1000 MCG (500 MCG, 2 IN 1 D), ORAL
     Route: 048
     Dates: start: 20050719, end: 20050725
  2. DIOVAN [Concomitant]
  3. EVISTA [Concomitant]
  4. MOBIC [Concomitant]
  5. CLARITIN [Concomitant]
  6. CALCIUM (CALCIUM) [Concomitant]
  7. MULTIPLE VITAMINS (ASCORBIC ACID, ERGOCALCIFEROL, FOLIC ACID, RETINOL, [Concomitant]
  8. NEXIUM [Concomitant]
  9. LIPITOR [Concomitant]
  10. ALLOPURINOL [Concomitant]
  11. TYLENOL W/ CODEINE NO. 3 [Concomitant]
  12. DARVOCET [Concomitant]
  13. MYLANTA (ALUMINUM HYDROXIDE, MAGNESIUM HYDROXIDE, SIMETHICONE) [Concomitant]
  14. AMBIEN [Concomitant]
  15. ASPIRIN [Concomitant]
  16. BENADRYL [Concomitant]
  17. COUMADIN [Concomitant]
  18. OCUVITE (ASCORBIC ACID, RETINOL, TOCOPHEROL) [Concomitant]
  19. OS-CAL D (CALCIUM CARBONATE, COLECALCIFEROL) [Concomitant]

REACTIONS (3)
  - BLOOD MAGNESIUM DECREASED [None]
  - BLOOD POTASSIUM DECREASED [None]
  - ELECTROCARDIOGRAM QT CORRECTED INTERVAL PROLONGED [None]
